FAERS Safety Report 15333295 (Version 2)
Quarter: 2019Q1

REPORT INFORMATION
  Report Type: Report from Study
  Country: None (occurrence: BR)
  Receive Date: 20180830
  Receipt Date: 20190126
  Transmission Date: 20190417
  Serious: Yes (Hospitalization, Other)
  Sender: FDA-Public Use
  Company Number: BR-ABBVIE-18K-020-2467869-00

PATIENT
  Sex: Female
  Weight: 48 kg

DRUGS (3)
  1. HUMIRA [Suspect]
     Active Substance: ADALIMUMAB
     Dosage: LOADING DOSE, WEEK 02
     Route: 058
  2. HUMIRA [Suspect]
     Active Substance: ADALIMUMAB
     Route: 058
     Dates: end: 2018
  3. HUMIRA [Suspect]
     Active Substance: ADALIMUMAB
     Indication: CROHN^S DISEASE
     Dosage: LOADING DOSE, WEEK 01
     Route: 058

REACTIONS (11)
  - Crohn^s disease [Unknown]
  - Gastrointestinal haemorrhage [Unknown]
  - Gait disturbance [Unknown]
  - Immunodeficiency [Recovered/Resolved]
  - Headache [Recovered/Resolved]
  - Pulmonary oedema [Recovered/Resolved]
  - Asthenia [Unknown]
  - Asthenia [Recovered/Resolved]
  - Malnutrition [Unknown]
  - Psychiatric symptom [Unknown]
  - Anaemia [Unknown]

NARRATIVE: CASE EVENT DATE: 2018
